FAERS Safety Report 4909361-8 (Version None)
Quarter: 2006Q1

REPORT INFORMATION
  Report Type: 
  Country: None (occurrence: None)
  Receive Date: 20060213
  Receipt Date: 20060201
  Transmission Date: 20060701
  Serious: Yes (Other)
  Sender: FDA-Public Use
  Company Number: ES-GLAXOSMITHKLINE-B0409424A

PATIENT
  Age: 46 Year

DRUGS (1)
  1. LAMICTAL [Suspect]
     Dosage: 50MG PER DAY
     Route: 048

REACTIONS (7)
  - MALAISE [None]
  - PRURITUS [None]
  - RASH [None]
  - RASH MACULO-PAPULAR [None]
  - SKIN LESION [None]
  - SKIN OEDEMA [None]
  - STEVENS-JOHNSON SYNDROME [None]
